APPROVED DRUG PRODUCT: PREDNISOLONE SODIUM PHOSPHATE
Active Ingredient: PREDNISOLONE SODIUM PHOSPHATE
Strength: EQ 20MG BASE/5ML
Dosage Form/Route: SOLUTION;ORAL
Application: A203559 | Product #002 | TE Code: AA
Applicant: EDENBRIDGE PHARMACEUTICALS LLC
Approved: Dec 20, 2016 | RLD: No | RS: No | Type: RX